FAERS Safety Report 9032489 (Version 5)
Quarter: 2013Q3

REPORT INFORMATION
  Report Type: Spontaneous
  Country: CA (occurrence: None)
  Receive Date: 20130108
  Receipt Date: 20130821
  Transmission Date: 20140515
  Serious: Yes (Other)
  Sender: FDA-Public Use
  Company Number: 2011-4701

PATIENT
  Age: 62 Year
  Sex: Male

DRUGS (2)
  1. SOMATULINE [Suspect]
     Indication: ACROMEGALY
     Dosage: 90 MG (90 MG,1 IN 28 D),SUBCUTANEOUS
     Route: 058
     Dates: start: 20090616, end: 20120906
  2. WELLBUTRIN (BUPROPION) [Concomitant]

REACTIONS (23)
  - Knee operation [None]
  - Depression [None]
  - Disturbance in attention [None]
  - Visual impairment [None]
  - Joint swelling [None]
  - Arthralgia [None]
  - Chills [None]
  - Headache [None]
  - Asthenia [None]
  - Nausea [None]
  - Hormone level abnormal [None]
  - Insomnia [None]
  - Hyperhidrosis [None]
  - Vomiting [None]
  - Post procedural complication [None]
  - Pain [None]
  - Asthenia [None]
  - Discomfort [None]
  - Arthralgia [None]
  - Arthralgia [None]
  - Arthralgia [None]
  - Arthralgia [None]
  - Drug ineffective [None]
